FAERS Safety Report 21421163 (Version 2)
Quarter: 2022Q4

REPORT INFORMATION
  Report Type: Spontaneous
  Country: JP (occurrence: JP)
  Receive Date: 20221007
  Receipt Date: 20221115
  Transmission Date: 20230113
  Serious: Yes (Hospitalization, Other)
  Sender: FDA-Public Use
  Company Number: JP-GLAXOSMITHKLINE-JP2022JPN142214

PATIENT

DRUGS (20)
  1. LAMICTAL [Suspect]
     Active Substance: LAMOTRIGINE
     Indication: Bipolar disorder
     Dosage: 25 MG, QOD
     Route: 048
     Dates: start: 20220714, end: 202207
  2. LAMICTAL [Suspect]
     Active Substance: LAMOTRIGINE
     Indication: Affective disorder
     Dosage: 25 MG, QD
     Route: 048
     Dates: start: 20220728, end: 20220809
  3. LAMICTAL [Suspect]
     Active Substance: LAMOTRIGINE
     Indication: Epilepsy
  4. LAMICTAL [Suspect]
     Active Substance: LAMOTRIGINE
     Indication: Mental disorder
  5. LEVETIRACETAM [Suspect]
     Active Substance: LEVETIRACETAM
     Indication: Epileptic psychosis
     Dosage: 500 MG, BID
     Route: 048
     Dates: start: 20220729, end: 20220815
  6. REXULTI [Suspect]
     Active Substance: BREXPIPRAZOLE
     Indication: Senile psychosis
     Dosage: 1 MG
     Route: 048
     Dates: start: 20220607, end: 20220615
  7. REXULTI [Suspect]
     Active Substance: BREXPIPRAZOLE
     Indication: Hallucination
     Dosage: 2 MG, QD
     Route: 048
     Dates: start: 20220627, end: 20220722
  8. REXULTI [Suspect]
     Active Substance: BREXPIPRAZOLE
     Indication: Delusion
  9. VONOPRAZAN FUMARATE [Concomitant]
     Active Substance: VONOPRAZAN FUMARATE
     Dosage: UNK
     Route: 048
     Dates: end: 20220815
  10. CARVEDILOL [Concomitant]
     Active Substance: CARVEDILOL
     Dosage: UNK
     Route: 048
     Dates: end: 20220815
  11. ROSUVASTATIN CALCIUM [Concomitant]
     Active Substance: ROSUVASTATIN CALCIUM
     Dosage: UNK
     Route: 048
     Dates: end: 20220815
  12. GOOFICE TABLET [Concomitant]
     Dosage: UNK
     Route: 048
     Dates: end: 20220815
  13. LATUDA [Concomitant]
     Active Substance: LURASIDONE HYDROCHLORIDE
     Dosage: 10 MG
     Route: 048
     Dates: start: 20220721
  14. LATUDA [Concomitant]
     Active Substance: LURASIDONE HYDROCHLORIDE
     Dosage: 20 MG
     Route: 048
     Dates: start: 20220729, end: 20220815
  15. DAYVIGO [Concomitant]
     Active Substance: LEMBOREXANT
     Dosage: UNK
     Route: 048
     Dates: end: 20220815
  16. TRAZODONE HYDROCHLORIDE [Concomitant]
     Active Substance: TRAZODONE HYDROCHLORIDE
     Dosage: UNK
     Route: 048
     Dates: end: 20220815
  17. NINJINYOEITO [Concomitant]
     Dosage: UNK
     Route: 048
     Dates: end: 20220815
  18. VIMPAT TABLET [Concomitant]
     Indication: Epileptic psychosis
     Dosage: 100 MG/DAY
     Dates: start: 20220620, end: 202206
  19. LEVETIRACETAM [Concomitant]
     Active Substance: LEVETIRACETAM
     Dosage: 1000 MG/DAY
     Dates: start: 20220624
  20. LEVETIRACETAM [Concomitant]
     Active Substance: LEVETIRACETAM
     Dosage: UNK
     Route: 048
     Dates: start: 20220629, end: 20220815

REACTIONS (10)
  - Drug reaction with eosinophilia and systemic symptoms [Unknown]
  - Malaise [Unknown]
  - Apathy [Unknown]
  - Rash [Unknown]
  - Pruritus [Unknown]
  - Urticaria [Unknown]
  - Feeling hot [Unknown]
  - Liver disorder [Recovering/Resolving]
  - Erythema [Unknown]
  - Drug eruption [Unknown]

NARRATIVE: CASE EVENT DATE: 20220721
